FAERS Safety Report 7774633-9 (Version None)
Quarter: 2011Q3

REPORT INFORMATION
  Report Type: 
  Country: None (occurrence: None)
  Receive Date: 20110923
  Receipt Date: 20110912
  Transmission Date: 20111222
  Serious: Yes (Death)
  Sender: FDA-Public Use
  Company Number: DZ-ROCHE-803887

PATIENT
  Sex: Female

DRUGS (3)
  1. TRASTUZUMAB [Suspect]
     Indication: BREAST CANCER
     Dosage: DOSE: NR. FORM : INFUSION.
     Route: 042
     Dates: start: 20101010, end: 20110517
  2. LAPATINIB [Suspect]
     Indication: BREAST CANCER
     Dosage: FREQUENCY: PER CURE.
     Route: 048
     Dates: start: 20101010, end: 20110517
  3. ZOLEDRONIC ACID [Suspect]
     Indication: BREAST CANCER
     Dosage: FREQUENCY: PER CURE.  FORM : INFUSION.
     Route: 042
     Dates: start: 20101010, end: 20110517

REACTIONS (3)
  - DYSPNOEA [None]
  - DISEASE PROGRESSION [None]
  - RESPIRATORY FAILURE [None]
